FAERS Safety Report 4415948-1 (Version None)
Quarter: 2004Q3

REPORT INFORMATION
  Report Type: 
  Country: None (occurrence: None)
  Receive Date: 20040805
  Receipt Date: 20040805
  Transmission Date: 20050211
  Serious: Yes (Other)
  Sender: FDA-Public Use
  Company Number: None

PATIENT
  Age: 58 Year
  Sex: Male
  Weight: 144.2439 kg

DRUGS (2)
  1. CRESTOR [Suspect]
     Indication: BLOOD CHOLESTEROL INCREASED
     Dosage: ONE  5MG
     Dates: start: 20040608, end: 20040615
  2. CRESTOR [Suspect]
     Indication: MUSCULAR WEAKNESS
     Dosage: ONE  5MG
     Dates: start: 20040608, end: 20040615

REACTIONS (1)
  - MUSCULAR WEAKNESS [None]
